FAERS Safety Report 7245099-2 (Version None)
Quarter: 2011Q1

REPORT INFORMATION
  Report Type: 
  Country: None (occurrence: None)
  Receive Date: 20110118
  Receipt Date: 20101228
  Transmission Date: 20110831
  Serious: No
  Sender: FDA-Public Use
  Company Number: 2010120013

PATIENT
  Age: 3 Year
  Sex: Female

DRUGS (1)
  1. EDLUAR [Suspect]
     Indication: ACCIDENTAL EXPOSURE
     Dosage: (10 MG),SUBLINGUAL
     Route: 060
     Dates: start: 20101202, end: 20101202

REACTIONS (7)
  - ACCIDENTAL DRUG INTAKE BY CHILD [None]
  - SOMNOLENCE [None]
  - PSYCHOMOTOR HYPERACTIVITY [None]
  - FALL [None]
  - BALANCE DISORDER [None]
  - FATIGUE [None]
  - TREMOR [None]
